FAERS Safety Report 25434461 (Version 5)
Quarter: 2025Q3

REPORT INFORMATION
  Report Type: Spontaneous
  Country: EU (occurrence: EU)
  Receive Date: 20250613
  Receipt Date: 20250806
  Transmission Date: 20251020
  Serious: No
  Sender: PFIZER
  Company Number: EU-PFIZER INC-PV202500070122

PATIENT
  Age: 8 Year
  Sex: Female
  Weight: 24.5 kg

DRUGS (2)
  1. GENOTROPIN [Suspect]
     Active Substance: SOMATROPIN
     Indication: Growth hormone deficiency
     Route: 058
     Dates: start: 20250308
  2. GENOTROPIN [Suspect]
     Active Substance: SOMATROPIN
     Indication: Hypopituitarism
     Route: 058
     Dates: start: 20250609

REACTIONS (2)
  - Wrong technique in device usage process [Unknown]
  - Device leakage [Unknown]

NARRATIVE: CASE EVENT DATE: 20250609
